FAERS Safety Report 4891883-X (Version None)
Quarter: 2006Q1

REPORT INFORMATION
  Report Type: 
  Country: None (occurrence: None)
  Receive Date: 20060123
  Receipt Date: 20060111
  Transmission Date: 20060701
  Serious: Yes (Hospitalization, Other)
  Sender: FDA-Public Use
  Company Number: 200610098GDS

PATIENT
  Age: 58 Year
  Sex: Male

DRUGS (3)
  1. ACETYLSALICYLIC ACID SRT [Suspect]
     Dosage: 100 MG, TOTAL DAILY
  2. SIMVASTATIN [Suspect]
     Indication: HYPERCHOLESTEROLAEMIA
     Dosage: 40 MG, TOTAL DAILY
  3. INSULIN [Concomitant]

REACTIONS (10)
  - BLOOD BILIRUBIN INCREASED [None]
  - BLOOD GLUCOSE INCREASED [None]
  - BLOOD LACTATE DEHYDROGENASE INCREASED [None]
  - BLOOD UREA INCREASED [None]
  - BOWEL SOUNDS ABNORMAL [None]
  - EROSIVE DUODENITIS [None]
  - GASTRITIS EROSIVE [None]
  - GASTROINTESTINAL ULCER [None]
  - PANCREATITIS ACUTE [None]
  - VIRAL INFECTION [None]
